FAERS Safety Report 21405480 (Version 2)
Quarter: 2022Q4

REPORT INFORMATION
  Report Type: Other
  Country: US (occurrence: US)
  Receive Date: 20221004
  Receipt Date: 20221013
  Transmission Date: 20230113
  Serious: Yes (Other)
  Sender: FDA-Public Use
  Company Number: US-GBT-016765

PATIENT
  Sex: Male

DRUGS (2)
  1. OXBRYTA [Suspect]
     Active Substance: VOXELOTOR
     Indication: Sickle cell disease
     Route: 048
  2. ZOFRAN [Suspect]
     Active Substance: ONDANSETRON HYDROCHLORIDE

REACTIONS (5)
  - Sickle cell anaemia with crisis [Recovered/Resolved]
  - Hypersensitivity [Recovered/Resolved]
  - Toothache [Recovered/Resolved]
  - Oral pain [Recovered/Resolved]
  - Hypoaesthesia oral [Unknown]
